FAERS Safety Report 13217950 (Version 3)
Quarter: 2018Q1

REPORT INFORMATION
  Report Type: Report from Study
  Country: JP (occurrence: JP)
  Receive Date: 20170210
  Receipt Date: 20180223
  Transmission Date: 20180508
  Serious: Yes (Hospitalization, Other)
  Sender: FDA-Public Use
  Company Number: JP-B.I. PHARMACEUTICALS,INC./RIDGEFIELD-2017-NB-000432

PATIENT
  Age: 9 Decade
  Sex: Female
  Weight: 35 kg

DRUGS (7)
  1. URSODEOXYCHOLIC ACID [Concomitant]
     Active Substance: URSODIOL
     Indication: PRODUCT USED FOR UNKNOWN INDICATION
     Route: 048
     Dates: end: 20170127
  2. ALDACTONE A [Concomitant]
     Active Substance: SPIRONOLACTONE
     Indication: PRODUCT USED FOR UNKNOWN INDICATION
     Route: 048
     Dates: end: 20170127
  3. PRAZAXA [Suspect]
     Active Substance: DABIGATRAN ETEXILATE MESYLATE
     Indication: ATRIAL FIBRILLATION
     Route: 048
     Dates: start: 20161225, end: 20170126
  4. MAINTATE [Concomitant]
     Active Substance: BISOPROLOL FUMARATE
     Indication: PRODUCT USED FOR UNKNOWN INDICATION
     Route: 048
     Dates: end: 20170127
  5. REBAMIPIDE [Concomitant]
     Active Substance: REBAMIPIDE
     Indication: SPINAL COMPRESSION FRACTURE
     Route: 048
     Dates: end: 20170127
  6. LOXOPROFEN [Concomitant]
     Active Substance: LOXOPROFEN
     Indication: SPINAL COMPRESSION FRACTURE
     Route: 048
     Dates: end: 20170127
  7. TRAZENTA [Concomitant]
     Active Substance: LINAGLIPTIN
     Indication: DIABETES MELLITUS
     Route: 048
     Dates: end: 20170127

REACTIONS (4)
  - Subdural haemorrhage [Unknown]
  - Subarachnoid haemorrhage [Unknown]
  - Skull fracture [Unknown]
  - Fall [Unknown]

NARRATIVE: CASE EVENT DATE: 20170127
